FAERS Safety Report 9832991 (Version 2)
Quarter: 2014Q1

REPORT INFORMATION
  Report Type: Spontaneous
  Country: US (occurrence: US)
  Receive Date: 20140121
  Receipt Date: 20140210
  Transmission Date: 20141002
  Serious: Yes (Other)
  Sender: FDA-Public Use
  Company Number: US-RB-062744-14

PATIENT
  Age: 64 Year
  Sex: Female

DRUGS (3)
  1. MUCINEX DM MAXIMUM STRENGTH [Suspect]
     Indication: INCREASED UPPER AIRWAY SECRETION
     Dosage: EVERY 12 HOURS
     Route: 048
     Dates: start: 20140124
  2. FLUOXETINE [Concomitant]
     Indication: PRODUCT USED FOR UNKNOWN INDICATION
  3. ZOLPIDEM [Concomitant]
     Indication: PRODUCT USED FOR UNKNOWN INDICATION

REACTIONS (9)
  - Blood pressure diastolic increased [Recovering/Resolving]
  - Palpitations [Recovered/Resolved]
  - Feeling abnormal [Recovering/Resolving]
  - Thirst [Not Recovered/Not Resolved]
  - Dysphonia [Not Recovered/Not Resolved]
  - Contraindication to medical treatment [Not Recovered/Not Resolved]
  - Tongue dry [Not Recovered/Not Resolved]
  - Unevaluable event [Not Recovered/Not Resolved]
  - Dizziness [Recovered/Resolved]
